FAERS Safety Report 12437663 (Version 4)
Quarter: 2016Q3

REPORT INFORMATION
  Report Type: Spontaneous
  Country: US (occurrence: US)
  Receive Date: 20160606
  Receipt Date: 20160728
  Transmission Date: 20161109
  Serious: No
  Sender: FDA-Public Use
  Company Number: US-009507513-1606USA001340

PATIENT
  Sex: Female
  Weight: 94.33 kg

DRUGS (2)
  1. NEXPLANON [Suspect]
     Active Substance: ETONOGESTREL
     Indication: CONTRACEPTION
     Dosage: UNK
     Route: 059
     Dates: start: 201505
  2. CELESTA [Concomitant]
     Dosage: UNK

REACTIONS (6)
  - Muscle spasms [Unknown]
  - Menorrhagia [Unknown]
  - Weight increased [Unknown]
  - Abdominal pain [Unknown]
  - Abdominal distension [Unknown]
  - Menstruation irregular [Unknown]
